FAERS Safety Report 14907325 (Version 1)
Quarter: 2018Q2

REPORT INFORMATION
  Report Type: Other
  Country: IT (occurrence: IT)
  Receive Date: 20180517
  Receipt Date: 20180517
  Transmission Date: 20180711
  Serious: Yes (Other)
  Sender: FDA-Public Use
  Company Number: IT-MACLEODS PHARMACEUTICALS US LTD-MAC2018013323

PATIENT

DRUGS (2)
  1. LEVOFLOXACIN. [Suspect]
     Active Substance: LEVOFLOXACIN
     Indication: URINARY TRACT INFECTION
     Dosage: 1 DOSAGE FORM, AS NECESSARY
     Route: 048
  2. EUTIROX 25 MICROGRAM TABLETS [Concomitant]
     Indication: PRODUCT USED FOR UNKNOWN INDICATION
     Dosage: 25 MICROGRAM
     Route: 048

REACTIONS (5)
  - Nausea [Unknown]
  - Flatulence [Unknown]
  - Paraesthesia [Unknown]
  - Limb discomfort [Unknown]
  - Tendon pain [Unknown]

NARRATIVE: CASE EVENT DATE: 20180307
